FAERS Safety Report 19163093 (Version 1)
Quarter: 2021Q2

REPORT INFORMATION
  Report Type: Spontaneous
  Country: US (occurrence: US)
  Receive Date: 20210421
  Receipt Date: 20210421
  Transmission Date: 20210717
  Serious: Yes (Other)
  Sender: FDA-Public Use
  Company Number: US-EMCURE PHARMACEUTICALS LTD-2021-EPL-001322

PATIENT
  Age: 29 Year
  Sex: Male

DRUGS (5)
  1. HYDROXYZINE [Suspect]
     Active Substance: HYDROXYZINE HYDROCHLORIDE
     Indication: ANXIETY
     Dosage: 100 MG FOUR TIMES DAILY
  2. SERTRALINE [Concomitant]
     Active Substance: SERTRALINE HYDROCHLORIDE
     Dosage: 200 MG DAILY
  3. HYDROXYZINE [Suspect]
     Active Substance: HYDROXYZINE HYDROCHLORIDE
     Dosage: 200 MG AT BEDTIME THE NIGHT
  4. HYDROXYZINE [Suspect]
     Active Substance: HYDROXYZINE HYDROCHLORIDE
     Dosage: 200?600 MG
  5. OLANZAPINE. [Concomitant]
     Active Substance: OLANZAPINE
     Dosage: 20 MILLIGRAM AT BEDTIME

REACTIONS (3)
  - Respiratory acidosis [Unknown]
  - Priapism [Unknown]
  - Overdose [Unknown]
